FAERS Safety Report 9979289 (Version 1)
Quarter: 2014Q1

REPORT INFORMATION
  Report Type: Report from Study
  Country: US (occurrence: US)
  Receive Date: 20140306
  Receipt Date: 20140306
  Transmission Date: 20141002
  Serious: No
  Sender: FDA-Public Use
  Company Number: US-ABBVIE-13P-163-1172137-00

PATIENT
  Age: 76 Year
  Sex: Female

DRUGS (12)
  1. HUMIRA [Suspect]
     Indication: COLITIS ULCERATIVE
     Dosage: ONE DOSE
     Dates: start: 20131010, end: 20131010
  2. HUMIRA [Suspect]
     Dosage: ONE DOSE
     Dates: start: 20131024, end: 20131024
  3. HUMIRA [Suspect]
     Dates: start: 20131107, end: 20131107
  4. BABY ASPIRIN [Concomitant]
     Indication: THROMBOSIS PROPHYLAXIS
  5. BABY ASPIRIN [Concomitant]
     Indication: CEREBROVASCULAR ACCIDENT
  6. WARFARIN [Concomitant]
     Indication: THROMBOSIS PROPHYLAXIS
  7. WARFARIN [Concomitant]
     Indication: CEREBROVASCULAR ACCIDENT
  8. IMURAN [Concomitant]
     Indication: CROHN^S DISEASE
  9. IMURAN [Concomitant]
     Indication: COLITIS ULCERATIVE
  10. IRON [Concomitant]
     Indication: PRODUCT USED FOR UNKNOWN INDICATION
  11. ASACOL [Concomitant]
     Indication: CROHN^S DISEASE
  12. ASACOL [Concomitant]
     Indication: COLITIS ULCERATIVE

REACTIONS (4)
  - Epistaxis [Recovered/Resolved]
  - Mood swings [Not Recovered/Not Resolved]
  - Alopecia [Not Recovered/Not Resolved]
  - Epistaxis [Unknown]
